FAERS Safety Report 5325121-0 (Version None)
Quarter: 2007Q2

REPORT INFORMATION
  Report Type: 
  Country: None (occurrence: None)
  Receive Date: 20070511
  Receipt Date: 20070511
  Transmission Date: 20071010
  Serious: Yes (Life-Threatening, Hospitalization)
  Sender: FDA-Public Use
  Company Number: None

PATIENT
  Age: 59 Year
  Sex: Female
  Weight: 35 kg

DRUGS (1)
  1. DAPTOMYCIN   500MG    CUBIST [Suspect]
     Indication: PNEUMONIA
     Dosage: 170MG  Q24HR   IV BOLUS
     Route: 040
     Dates: start: 20060207, end: 20070209

REACTIONS (1)
  - STEVENS-JOHNSON SYNDROME [None]
